FAERS Safety Report 12744150 (Version 2)
Quarter: 2016Q4

REPORT INFORMATION
  Report Type: Spontaneous
  Country: IN (occurrence: IN)
  Receive Date: 20160914
  Receipt Date: 20161010
  Transmission Date: 20170207
  Serious: Yes (Hospitalization, Other)
  Sender: FDA-Public Use
  Company Number: IN-ELI_LILLY_AND_COMPANY-IN201609001442

PATIENT
  Sex: Female
  Weight: 55.2 kg

DRUGS (2)
  1. FORTEO [Suspect]
     Active Substance: TERIPARATIDE
     Indication: PRODUCT USED FOR UNKNOWN INDICATION
     Dosage: UNK, UNKNOWN
     Route: 058
  2. SOFTERON Z [Concomitant]

REACTIONS (14)
  - Heart rate increased [Recovering/Resolving]
  - Nausea [Recovering/Resolving]
  - Injection site pain [Recovering/Resolving]
  - Palpitations [Recovering/Resolving]
  - Accidental overdose [Unknown]
  - Restlessness [Recovering/Resolving]
  - Sensory loss [Recovering/Resolving]
  - Vomiting [Recovering/Resolving]
  - Drug administered at inappropriate site [Unknown]
  - Visual acuity reduced [Recovering/Resolving]
  - Dizziness [Recovering/Resolving]
  - Hyperhidrosis [Recovering/Resolving]
  - Chest pain [Unknown]
  - Dyspnoea [Recovering/Resolving]
